FAERS Safety Report 21892755 (Version 2)
Quarter: 2023Q1

REPORT INFORMATION
  Report Type: Spontaneous
  Country: US (occurrence: US)
  Receive Date: 20230120
  Receipt Date: 20230217
  Transmission Date: 20230418
  Serious: Yes (Hospitalization, Other)
  Sender: FDA-Public Use
  Company Number: US-009507513-2301USA007630

PATIENT
  Sex: Female
  Weight: 57.596 kg

DRUGS (5)
  1. KEYTRUDA [Suspect]
     Active Substance: PEMBROLIZUMAB
     Indication: Sarcoma uterus
     Dosage: UNK
     Dates: start: 202212
  2. LENVATINIB MESYLATE [Suspect]
     Active Substance: LENVATINIB MESYLATE
     Indication: Sarcoma uterus
     Dosage: UNK
     Route: 048
     Dates: start: 20221228
  3. LENVATINIB MESYLATE [Suspect]
     Active Substance: LENVATINIB MESYLATE
     Dosage: UNK
     Route: 048
     Dates: start: 20230110
  4. ZOFRAN [Concomitant]
     Active Substance: ONDANSETRON HYDROCHLORIDE
     Dosage: UNK
  5. LORAZEPAM [Concomitant]
     Active Substance: LORAZEPAM
     Dosage: UNK

REACTIONS (13)
  - Malignant neoplasm progression [Unknown]
  - Lung neoplasm malignant [Unknown]
  - Hypotension [Recovered/Resolved]
  - Pain in jaw [Unknown]
  - Peripheral swelling [Unknown]
  - Feeling hot [Unknown]
  - Pain [Unknown]
  - Drug hypersensitivity [Unknown]
  - Vomiting [Unknown]
  - Headache [Unknown]
  - Back pain [Unknown]
  - Pyrexia [Not Recovered/Not Resolved]
  - Product use in unapproved indication [Unknown]

NARRATIVE: CASE EVENT DATE: 20221201
